FAERS Safety Report 4757700-3 (Version None)
Quarter: 2005Q3

REPORT INFORMATION
  Report Type: 
  Country: None (occurrence: None)
  Receive Date: 20050831
  Receipt Date: 20050822
  Transmission Date: 20060218
  Serious: Yes (Hospitalization, Other)
  Sender: FDA-Public Use
  Company Number: PHEH2005US09359

PATIENT
  Age: 55 Year
  Sex: Male

DRUGS (9)
  1. RANITIDINE HCL [Concomitant]
     Dosage: 150 MG, BID
  2. ZOMETA [Suspect]
     Route: 042
     Dates: start: 20050723
  3. EFFEXOR XR [Concomitant]
     Dosage: 150 MG, BID
  4. ULTRAM [Concomitant]
     Dosage: 50 MG, BID
     Route: 048
  5. RISPERDAL [Concomitant]
     Dosage: 25 MG, BID
     Route: 048
  6. PROSCAR [Concomitant]
     Dosage: 5 MG, QD
  7. CASODEX [Concomitant]
     Dosage: 50 MG, QD
  8. VICODIN [Concomitant]
     Dosage: 1 TABLET Q4H
  9. LUPRON [Concomitant]
     Dosage: 4-MONTH INJECTION

REACTIONS (12)
  - ARTHRALGIA [None]
  - ASPARTATE AMINOTRANSFERASE INCREASED [None]
  - BLOOD ALKALINE PHOSPHATASE INCREASED [None]
  - BLOOD BILIRUBIN INCREASED [None]
  - BONE PAIN [None]
  - DIFFICULTY IN WALKING [None]
  - FEELING HOT [None]
  - HYPOCALCAEMIA [None]
  - MUSCLE SPASMS [None]
  - PAIN [None]
  - PARAESTHESIA [None]
  - PYREXIA [None]
